FAERS Safety Report 19946762 (Version 3)
Quarter: 2021Q4

REPORT INFORMATION
  Report Type: Spontaneous
  Country: CO (occurrence: CO)
  Receive Date: 20211013
  Receipt Date: 20211116
  Transmission Date: 20220303
  Serious: Yes (Hospitalization)
  Sender: FDA-Public Use
  Company Number: CO-BEH-2021136905

PATIENT
  Sex: Female
  Weight: 60 kg

DRUGS (8)
  1. BERINERT [Suspect]
     Active Substance: HUMAN C1-ESTERASE INHIBITOR
     Indication: Hereditary angioedema with C1 esterase inhibitor deficiency
     Dosage: 500 INTERNATIONAL UNIT (20 UI/KG, 20MG/KG)
     Route: 042
     Dates: start: 20210930, end: 20210930
  2. BERINERT [Suspect]
     Active Substance: HUMAN C1-ESTERASE INHIBITOR
     Indication: Hereditary angioedema with C1 esterase inhibitor deficiency
     Dosage: 500 INTERNATIONAL UNIT (20 UI/KG, 20MG/KG)
     Route: 042
     Dates: start: 20210930, end: 20210930
  3. BERINERT [Suspect]
     Active Substance: HUMAN C1-ESTERASE INHIBITOR
     Indication: Hereditary angioedema
  4. BERINERT [Suspect]
     Active Substance: HUMAN C1-ESTERASE INHIBITOR
     Indication: Hereditary angioedema
  5. HUMAN PLASMA [Concomitant]
     Active Substance: HUMAN PLASMA
     Indication: Hereditary angioedema
  6. HUMAN PLASMA [Concomitant]
     Active Substance: HUMAN PLASMA
     Indication: Lip oedema
  7. HUMAN PLASMA [Concomitant]
     Active Substance: HUMAN PLASMA
     Indication: Respiratory tract oedema
  8. HUMAN PLASMA [Concomitant]
     Active Substance: HUMAN PLASMA
     Indication: Hereditary angioedema

REACTIONS (2)
  - Drug ineffective [Unknown]
  - Pneumonia [Recovered/Resolved]

NARRATIVE: CASE EVENT DATE: 20210930
